FAERS Safety Report 24752380 (Version 1)
Quarter: 2024Q4

REPORT INFORMATION
  Report Type: Spontaneous
  Country: CA (occurrence: None)
  Receive Date: 20241219
  Receipt Date: 20241219
  Transmission Date: 20250115
  Serious: Yes (Other)
  Sender: ORION
  Company Number: CA-PFIZER INC-202400325594

PATIENT
  Age: 49 Year

DRUGS (2)
  1. METHOTREXATE [Suspect]
     Active Substance: METHOTREXATE
     Indication: Product used for unknown indication
     Dates: start: 199602, end: 2008
  2. METHOTREXATE [Suspect]
     Active Substance: METHOTREXATE
     Dosage: MAINTENANCE
     Dates: start: 201706, end: 202006

REACTIONS (2)
  - Leukopenia [Unknown]
  - Dyspepsia [Unknown]
